FAERS Safety Report 7279080-4 (Version None)
Quarter: 2011Q1

REPORT INFORMATION
  Report Type: 
  Country: None (occurrence: None)
  Receive Date: 20110207
  Receipt Date: 20110202
  Transmission Date: 20110831
  Serious: Yes (Death)
  Sender: FDA-Public Use
  Company Number: PHHY2011JP08542

PATIENT

DRUGS (1)
  1. AFINITOR [Suspect]

REACTIONS (1)
  - INTERSTITIAL LUNG DISEASE [None]
